FAERS Safety Report 5314149-2 (Version None)
Quarter: 2007Q2

REPORT INFORMATION
  Report Type: 
  Country: None (occurrence: None)
  Receive Date: 20070425
  Receipt Date: 20070413
  Transmission Date: 20071010
  Serious: Yes (Hospitalization)
  Sender: FDA-Public Use
  Company Number: TCI2007A01352

PATIENT
  Age: 65 Year
  Sex: Female

DRUGS (3)
  1. ACTOS [Suspect]
     Indication: DIABETES MELLITUS NON-INSULIN-DEPENDENT
     Dosage: SEE IMAGE
     Route: 048
     Dates: start: 20060701, end: 20070301
  2. BISOPROLOL FUMARATE [Concomitant]
  3. PRAVASTATIN [Concomitant]

REACTIONS (5)
  - IMMUNODEFICIENCY [None]
  - INFECTION [None]
  - MYELODYSPLASTIC SYNDROME [None]
  - OSTEOARTHRITIS [None]
  - REFRACTORY ANAEMIA WITH AN EXCESS OF BLASTS [None]
